FAERS Safety Report 25278612 (Version 1)
Quarter: 2025Q2

REPORT INFORMATION
  Report Type: Spontaneous
  Country: GB (occurrence: GB)
  Receive Date: 20250507
  Receipt Date: 20250507
  Transmission Date: 20250716
  Serious: Yes (Other)
  Sender: TEVA
  Company Number: GB-MHRA-TPP22694757C7498724YC1746088458393

PATIENT
  Age: 67 Year
  Sex: Female
  Weight: 96 kg

DRUGS (9)
  1. METFORMIN [Suspect]
     Active Substance: METFORMIN HYDROCHLORIDE
     Indication: Product used for unknown indication
     Dosage: ONE TABLET A DAY FOR A WEEK, AND THEN 1 TABLET , DURATION: 25 DAYS
     Route: 065
     Dates: start: 20250404, end: 20250428
  2. VENLAFAXINE [Concomitant]
     Active Substance: VENLAFAXINE HYDROCHLORIDE
     Indication: Product used for unknown indication
     Dosage: TAKE ONE DAILY, DAILY DOSE: 1 DOSAGE FORM DAILY
     Route: 065
     Dates: start: 20220624
  3. DAPAGLIFLOZIN [Concomitant]
     Active Substance: DAPAGLIFLOZIN
     Indication: Ill-defined disorder
     Dosage: TAKE ONE DAILY, DAILY DOSE: 1 DOSAGE FORM DAILY
     Route: 065
     Dates: start: 20250428
  4. LANSOPRAZOLE [Concomitant]
     Active Substance: LANSOPRAZOLE
     Indication: Ill-defined disorder
     Dosage: TAKE ONE TWICE DAILY FIRST THING IN MORNING AND...
     Route: 065
     Dates: start: 20241205
  5. CLARITHROMYCIN [Concomitant]
     Active Substance: CLARITHROMYCIN
     Indication: Product used for unknown indication
     Dosage: TAKE ONE TABLET TWICE A DAY FOR 5 DAYS, TO TREA, DURATION: 5 DAYS
     Route: 065
     Dates: start: 20250414, end: 20250419
  6. LEVOTHYROXINE [Concomitant]
     Active Substance: LEVOTHYROXINE
     Indication: Ill-defined disorder
     Dosage: TAKE ONE EACH MORNING, DAILY DOSE: 1 DOSAGE FORM DAILY
     Route: 065
     Dates: start: 20241205
  7. EZETIMIBE [Concomitant]
     Active Substance: EZETIMIBE
     Indication: Ill-defined disorder
     Dosage: TAKE ONE DAILY, DAILY DOSE: 1 DOSAGE FORM DAILY
     Route: 065
     Dates: start: 20241205
  8. CETIRIZINE [Concomitant]
     Active Substance: CETIRIZINE HYDROCHLORIDE
     Indication: Product used for unknown indication
     Dosage: TAKE ONE TABLET ONCE A DAY, DAILY DOSE: 1 DOSAGE FORM DAILY
     Route: 065
     Dates: start: 20250414
  9. ATENOLOL [Concomitant]
     Active Substance: ATENOLOL
     Indication: Product used for unknown indication
     Dosage: TAKE TWO DAILY  ( START FROM TAKING ONE AND A H...
     Route: 065
     Dates: start: 20241205

REACTIONS (2)
  - Rash [Unknown]
  - Urticaria [Unknown]
